FAERS Safety Report 14372802 (Version 3)
Quarter: 2018Q1

REPORT INFORMATION
  Report Type: Spontaneous
  Country: JP (occurrence: JP)
  Receive Date: 20180110
  Receipt Date: 20180308
  Transmission Date: 20180509
  Serious: Yes (Hospitalization)
  Sender: FDA-Public Use
  Company Number: JP-ELI_LILLY_AND_COMPANY-JP201712008795

PATIENT
  Age: 79 Year
  Sex: Male
  Weight: 66 kg

DRUGS (7)
  1. MAGNESIUM OXIDE. [Concomitant]
     Active Substance: MAGNESIUM OXIDE
     Indication: CONSTIPATION
     Dosage: 3 DF, UNK
     Route: 048
  2. CYRAMZA [Suspect]
     Active Substance: RAMUCIRUMAB
     Indication: COLON CANCER
     Dosage: 545 MG, CYCLICAL
     Route: 042
     Dates: start: 20171024, end: 20171122
  3. FLUOROURACIL. [Suspect]
     Active Substance: FLUOROURACIL
     Indication: COLON CANCER
     Dosage: 420 MG, CYCLICAL
     Route: 042
     Dates: start: 20171024, end: 20171122
  4. IRINOTECAN [Suspect]
     Active Substance: IRINOTECAN
     Indication: COLON CANCER
     Dosage: 150 MG, CYCLICAL
     Route: 042
     Dates: start: 20171024, end: 20171122
  5. DAIKENCHUTO [Concomitant]
     Active Substance: HERBALS
     Indication: CONSTIPATION
     Dosage: 3 DF, UNK
     Route: 048
  6. FLUOROURACIL. [Suspect]
     Active Substance: FLUOROURACIL
     Dosage: 2500 MG, CYCLICAL
     Route: 041
     Dates: start: 20171024, end: 20171122
  7. CALCIUM LEVOFOLINATE [Concomitant]
     Active Substance: LEVOLEUCOVORIN CALCIUM
     Indication: COLON CANCER
     Dosage: UNK UNK, CYCLICAL
     Route: 042

REACTIONS (2)
  - Neutrophil count decreased [Recovering/Resolving]
  - Hepatic encephalopathy [Recovered/Resolved]

NARRATIVE: CASE EVENT DATE: 20171106
